FAERS Safety Report 21939935 (Version 1)
Quarter: 2023Q1

REPORT INFORMATION
  Report Type: Report from Study
  Country: US (occurrence: US)
  Receive Date: 20230201
  Receipt Date: 20230201
  Transmission Date: 20230417
  Serious: No
  Sender: FDA-Public Use
  Company Number: US-EXELIXIS-CABO-22049112

PATIENT
  Age: 55 Year
  Sex: Female
  Weight: 70.85 kg

DRUGS (1)
  1. CABOMETYX [Suspect]
     Active Substance: CABOZANTINIB S-MALATE
     Indication: Colon cancer
     Dosage: 40 MG, QD
     Route: 048
     Dates: start: 20220202

REACTIONS (6)
  - Arthritis [Unknown]
  - Paraesthesia [Unknown]
  - Blood pressure increased [Unknown]
  - Rash [Unknown]
  - Muscle spasms [Unknown]
  - Off label use [Unknown]

NARRATIVE: CASE EVENT DATE: 20220201
